FAERS Safety Report 5264776-6 (Version None)
Quarter: 2007Q1

REPORT INFORMATION
  Report Type: 
  Country: None (occurrence: None)
  Receive Date: 20070314
  Receipt Date: 20070301
  Transmission Date: 20070707
  Serious: Yes (Hospitalization)
  Sender: FDA-Public Use
  Company Number: PHBS2007NZ03775

PATIENT
  Age: 60 Year
  Sex: Female

DRUGS (4)
  1. CLOZAPINE [Suspect]
     Indication: SCHIZOAFFECTIVE DISORDER
     Dosage: 250 MG/DAY
     Dates: start: 20041001
  2. VALPROATE SODIUM [Concomitant]
     Dosage: 2000 MG/DAY
  3. VENLAFAXINE HCL [Concomitant]
     Indication: DEPRESSION
     Dosage: 75 MG/DAY
  4. LEVOTHYROXINE SODIUM [Concomitant]
     Dosage: 150 MG/DAY

REACTIONS (18)
  - BLOOD GLUCOSE INCREASED [None]
  - BLOOD LACTATE DEHYDROGENASE INCREASED [None]
  - BLOOD PH INCREASED [None]
  - COUGH [None]
  - INFLUENZA LIKE ILLNESS [None]
  - MONOCYTE PERCENTAGE INCREASED [None]
  - NEUTROPHIL PERCENTAGE DECREASED [None]
  - OXYGEN SATURATION DECREASED [None]
  - PERICARDIAL EFFUSION [None]
  - PLEURAL EFFUSION [None]
  - PLEURAL RUB [None]
  - PLEURITIC PAIN [None]
  - POLYSEROSITIS [None]
  - RESPIRATORY DEPTH DECREASED [None]
  - SALIVARY HYPERSECRETION [None]
  - SEDATION [None]
  - TACHYPNOEA [None]
  - WHITE BLOOD CELL COUNT DECREASED [None]
